FAERS Safety Report 8788293 (Version 1)
Quarter: 2012Q4

REPORT INFORMATION
  Report Type: 
  Country: US (occurrence: US)
  Receive Date: 20120914
  Receipt Date: 20120914
  Transmission Date: 20130627
  Serious: No
  Sender: FDA-Public Use
  Company Number: US-VERTEX PHARMACEUTICAL INC.-AE-2012-011684

PATIENT
  Age: 58 Year
  Sex: Female
  Weight: 74.55 kg

DRUGS (7)
  1. INCIVEK [Suspect]
     Indication: HEPATITIS C
     Route: 048
     Dates: start: 20120518
  2. PEGINTERFERON [Concomitant]
     Indication: HEPATITIS C
     Dates: start: 20120518
  3. RIBAVIRIN [Concomitant]
     Indication: HEPATITIS C
     Dates: start: 20120518
  4. WELLBUTRIN [Concomitant]
     Indication: DEPRESSION
  5. PREVACID [Concomitant]
  6. PAXIL [Concomitant]
     Indication: DEPRESSION
  7. ZOFRAN [Concomitant]

REACTIONS (1)
  - Incorrect dose administered [Unknown]
